FAERS Safety Report 20850353 (Version 1)
Quarter: 2022Q2

REPORT INFORMATION
  Report Type: Spontaneous
  Country: US (occurrence: US)
  Receive Date: 20220519
  Receipt Date: 20220519
  Transmission Date: 20220721
  Serious: No
  Sender: FDA-Public Use
  Company Number: US-JNJFOC-20220526451

PATIENT

DRUGS (20)
  1. BENADRYL [Suspect]
     Active Substance: DIPHENHYDRAMINE HYDROCHLORIDE
     Indication: Hypersensitivity
     Route: 065
  2. BENADRYL [Suspect]
     Active Substance: DIPHENHYDRAMINE HYDROCHLORIDE
     Indication: Pruritus
  3. BENADRYL [Suspect]
     Active Substance: DIPHENHYDRAMINE HYDROCHLORIDE
     Indication: Mouth swelling
  4. BENADRYL [Suspect]
     Active Substance: DIPHENHYDRAMINE HYDROCHLORIDE
     Indication: Pharyngeal swelling
  5. BENADRYL [Suspect]
     Active Substance: DIPHENHYDRAMINE HYDROCHLORIDE
     Indication: Asthma
  6. ZYRTEC [Suspect]
     Active Substance: CETIRIZINE HYDROCHLORIDE
     Indication: Hypersensitivity
     Route: 065
  7. ZYRTEC [Suspect]
     Active Substance: CETIRIZINE HYDROCHLORIDE
     Indication: Pruritus
  8. ZYRTEC [Suspect]
     Active Substance: CETIRIZINE HYDROCHLORIDE
     Indication: Mouth swelling
  9. ZYRTEC [Suspect]
     Active Substance: CETIRIZINE HYDROCHLORIDE
     Indication: Pharyngeal swelling
  10. ZYRTEC [Suspect]
     Active Substance: CETIRIZINE HYDROCHLORIDE
     Indication: Asthma
  11. PEPCID AC [Suspect]
     Active Substance: FAMOTIDINE
     Indication: Hypersensitivity
     Route: 065
  12. PEPCID AC [Suspect]
     Active Substance: FAMOTIDINE
     Indication: Pruritus
  13. PEPCID AC [Suspect]
     Active Substance: FAMOTIDINE
     Indication: Mouth swelling
  14. PEPCID AC [Suspect]
     Active Substance: FAMOTIDINE
     Indication: Pharyngeal swelling
  15. PEPCID AC [Suspect]
     Active Substance: FAMOTIDINE
     Indication: Asthma
  16. ALBUTEROL [Concomitant]
     Active Substance: ALBUTEROL
     Indication: Hypersensitivity
     Route: 065
  17. ALBUTEROL [Concomitant]
     Active Substance: ALBUTEROL
     Indication: Pruritus
  18. ALBUTEROL [Concomitant]
     Active Substance: ALBUTEROL
     Indication: Mouth swelling
  19. ALBUTEROL [Concomitant]
     Active Substance: ALBUTEROL
     Indication: Pharyngeal swelling
  20. ALBUTEROL [Concomitant]
     Active Substance: ALBUTEROL
     Indication: Asthma

REACTIONS (1)
  - Product use in unapproved indication [Unknown]
